FAERS Safety Report 11934729 (Version 1)
Quarter: 2016Q1

REPORT INFORMATION
  Report Type: Spontaneous
  Country: US (occurrence: None)
  Receive Date: 20160120
  Receipt Date: 20160120
  Transmission Date: 20160526
  Serious: Yes (Other)
  Sender: FDA-Public Use
  Company Number: None

PATIENT
  Age: 65 Year
  Sex: Male
  Weight: 78.02 kg

DRUGS (6)
  1. LAMOTRIGINE. [Suspect]
     Active Substance: LAMOTRIGINE
     Indication: ANXIETY
     Dosage: 50 TO 100MG ONCE DAILY TAKEN BY MOUTH
     Route: 048
     Dates: start: 20160111, end: 20160119
  2. IBUPROPIN [Concomitant]
  3. LAMOTRIGINE. [Suspect]
     Active Substance: LAMOTRIGINE
     Indication: BIPOLAR II DISORDER
     Dosage: 50 TO 100MG ONCE DAILY TAKEN BY MOUTH
     Route: 048
     Dates: start: 20160111, end: 20160119
  4. LAMOTRIGINE. [Suspect]
     Active Substance: LAMOTRIGINE
     Indication: DEPRESSION
     Dosage: 50 TO 100MG ONCE DAILY TAKEN BY MOUTH
     Route: 048
     Dates: start: 20160111, end: 20160119
  5. BUPROPRION XL [Concomitant]
     Active Substance: BUPROPION
  6. CARISOPRODOL. [Concomitant]
     Active Substance: CARISOPRODOL

REACTIONS (3)
  - Product substitution issue [None]
  - Anxiety [None]
  - Drug ineffective [None]

NARRATIVE: CASE EVENT DATE: 20160119
